FAERS Safety Report 7219575-2 (Version None)
Quarter: 2011Q1

REPORT INFORMATION
  Report Type: 
  Country: None (occurrence: None)
  Receive Date: 20110111
  Receipt Date: 20110107
  Transmission Date: 20110831
  Serious: Yes (Death)
  Sender: FDA-Public Use
  Company Number: US-ASTRAZENECA-2011SE01228

PATIENT
  Age: 86 Year
  Sex: Female
  Weight: 69.9 kg

DRUGS (6)
  1. METOPROLOL SUCCINATE [Concomitant]
  2. NAMENDA [Concomitant]
  3. POSTASSIUM [Concomitant]
  4. FEUROSEMIDE [Concomitant]
  5. RANITADINE [Concomitant]
  6. SEROQUEL [Suspect]
     Indication: DEMENTIA ALZHEIMER'S TYPE
     Route: 048
     Dates: start: 20101115, end: 20101118

REACTIONS (2)
  - PNEUMONIA [None]
  - SOMNOLENCE [None]
